FAERS Safety Report 9759714 (Version 1)
Quarter: 2013Q4

REPORT INFORMATION
  Report Type: Spontaneous
  Country: US (occurrence: US)
  Receive Date: 20131216
  Receipt Date: 20131216
  Transmission Date: 20140711
  Serious: No
  Sender: FDA-Public Use
  Company Number: US-GILEAD-2010-0029064

PATIENT
  Sex: Female
  Weight: 83.01 kg

DRUGS (13)
  1. LETAIRIS [Suspect]
     Indication: PULMONARY ARTERIAL HYPERTENSION
     Route: 048
     Dates: start: 20100413
  2. LORAZEPAM [Concomitant]
  3. DYAZIDE [Concomitant]
  4. HYDROMORPHONE [Concomitant]
  5. GABAPENTIN [Concomitant]
  6. SPIRIVA [Concomitant]
  7. CALCIUM [Concomitant]
  8. ACTOS [Concomitant]
  9. FISH OIL [Concomitant]
  10. PROTONIX [Concomitant]
  11. ISOSORBIDE MN [Concomitant]
  12. ASPIRIN [Concomitant]
  13. VITAMIN E [Concomitant]

REACTIONS (2)
  - Swelling [Unknown]
  - Fluid retention [Unknown]
